FAERS Safety Report 13739086 (Version 2)
Quarter: 2018Q2

REPORT INFORMATION
  Report Type: Report from Study
  Country: US (occurrence: US)
  Receive Date: 20170710
  Receipt Date: 20180627
  Transmission Date: 20180711
  Serious: No
  Sender: FDA-Public Use
  Company Number: US-SAOL THERAPEUTICS-2017SAO00891

PATIENT
  Age: 69 Year
  Sex: Male

DRUGS (2)
  1. BACLOFEN. [Suspect]
     Active Substance: BACLOFEN
     Dosage: 14.53 ?G, \DAY
     Route: 037
     Dates: start: 20140605
  2. BACLOFEN. [Suspect]
     Active Substance: BACLOFEN
     Dosage: 17.99 ?G, \DAY
     Dates: start: 20140610

REACTIONS (1)
  - Constipation [Recovered/Resolved]

NARRATIVE: CASE EVENT DATE: 20140617
